FAERS Safety Report 25107758 (Version 3)
Quarter: 2025Q4

REPORT INFORMATION
  Report Type: Spontaneous
  Country: US (occurrence: US)
  Receive Date: 20250322
  Receipt Date: 20251121
  Transmission Date: 20260117
  Serious: No
  Sender: SANOFI AVENTIS
  Company Number: US-SA-2025SA079194

PATIENT
  Age: 20 Year
  Sex: Male

DRUGS (1)
  1. ALTUVIIIO [Suspect]
     Active Substance: EFANESOCTOCOG ALFA
     Dosage: 2885 U (+/- 10%)
     Route: 042

REACTIONS (5)
  - Haemorrhage [Recovered/Resolved]
  - Joint injury [Unknown]
  - Arthralgia [Unknown]
  - Traumatic haemorrhage [Recovered/Resolved]
  - Contusion [Recovered/Resolved]

NARRATIVE: CASE EVENT DATE: 20250305
